FAERS Safety Report 13992977 (Version 3)
Quarter: 2018Q4

REPORT INFORMATION
  Report Type: Spontaneous
  Country: BR (occurrence: BR)
  Receive Date: 20170920
  Receipt Date: 20181227
  Transmission Date: 20190204
  Serious: Yes (Hospitalization, Other)
  Sender: FDA-Public Use
  Company Number: BR-PFIZER INC-2017404517

PATIENT
  Age: 78 Year
  Sex: Female

DRUGS (5)
  1. COMBIGAN [Concomitant]
     Active Substance: BRIMONIDINE TARTRATE\TIMOLOL MALEATE
     Indication: GLAUCOMA
     Dosage: UNK
     Dates: start: 1994
  2. EXODUS [ESCITALOPRAM OXALATE] [Concomitant]
     Indication: NERVOUSNESS
     Dosage: UNK
     Dates: start: 2012
  3. CLOPIDOGREL BISULFATE. [Concomitant]
     Active Substance: CLOPIDOGREL BISULFATE
     Dosage: UNK
  4. LIPITOR [Suspect]
     Active Substance: ATORVASTATIN CALCIUM
     Dosage: UNK (40 MG X 30 COATED TABLETS)
  5. ALOIS [Concomitant]
     Active Substance: MEMANTINE
     Dosage: UNK

REACTIONS (8)
  - Finger deformity [Not Recovered/Not Resolved]
  - Memory impairment [Not Recovered/Not Resolved]
  - Rheumatic disorder [Not Recovered/Not Resolved]
  - Aortic aneurysm [Not Recovered/Not Resolved]
  - Malaise [Unknown]
  - Cerebrovascular accident [Recovered/Resolved]
  - Nerve injury [Not Recovered/Not Resolved]
  - Bone deformity [Not Recovered/Not Resolved]

NARRATIVE: CASE EVENT DATE: 2013
